FAERS Safety Report 16225267 (Version 3)
Quarter: 2020Q2

REPORT INFORMATION
  Report Type: Spontaneous
  Country: US (occurrence: US)
  Receive Date: 20190422
  Receipt Date: 20200422
  Transmission Date: 20200713
  Serious: Yes (Hospitalization, Other)
  Sender: FDA-Public Use
  Company Number: US-ASTRAZENECA-2019SE57316

PATIENT
  Age: 17640 Day
  Sex: Female
  Weight: 119.3 kg

DRUGS (69)
  1. PRILOSEC [Suspect]
     Active Substance: OMEPRAZOLE MAGNESIUM
     Indication: GASTROOESOPHAGEAL REFLUX DISEASE
     Route: 048
     Dates: start: 20090108
  2. PRILOSEC OTC [Suspect]
     Active Substance: OMEPRAZOLE MAGNESIUM
     Indication: GASTROOESOPHAGEAL REFLUX DISEASE
     Route: 048
     Dates: start: 199904, end: 201701
  3. ALPRAZOLAM. [Concomitant]
     Active Substance: ALPRAZOLAM
     Indication: SEDATIVE THERAPY
     Dates: start: 20130503, end: 20170503
  4. METOPROLOL SUCCINATE. [Concomitant]
     Active Substance: METOPROLOL SUCCINATE
  5. CLINDAMYCIN. [Concomitant]
     Active Substance: CLINDAMYCIN
  6. CITALOPRAM [Concomitant]
     Active Substance: CITALOPRAM HYDROBROMIDE
  7. FLEXERIL [Concomitant]
     Active Substance: CYCLOBENZAPRINE HYDROCHLORIDE
  8. DIPHENHYDRAMINE. [Concomitant]
     Active Substance: DIPHENHYDRAMINE
  9. NEXIUM [Suspect]
     Active Substance: ESOMEPRAZOLE MAGNESIUM
     Indication: GASTROOESOPHAGEAL REFLUX DISEASE
     Route: 048
     Dates: start: 199904, end: 201701
  10. NEXIUM [Suspect]
     Active Substance: ESOMEPRAZOLE MAGNESIUM
     Indication: GASTROOESOPHAGEAL REFLUX DISEASE
     Route: 048
     Dates: start: 20090809, end: 20090909
  11. PRILOSEC [Suspect]
     Active Substance: OMEPRAZOLE MAGNESIUM
     Indication: GASTROOESOPHAGEAL REFLUX DISEASE
     Dosage: 20-40 MG TWICE DAILY (GENERIC)
     Route: 065
     Dates: start: 20121002, end: 20150605
  12. ALBUTEROL. [Concomitant]
     Active Substance: ALBUTEROL
     Dates: start: 20130524, end: 20130902
  13. TORSEMIDE. [Concomitant]
     Active Substance: TORSEMIDE
  14. ZETIA [Concomitant]
     Active Substance: EZETIMIBE
  15. CELECOXIB. [Concomitant]
     Active Substance: CELECOXIB
  16. NITROGLYCERIN. [Concomitant]
     Active Substance: NITROGLYCERIN
  17. PRILOSEC [Suspect]
     Active Substance: OMEPRAZOLE MAGNESIUM
     Indication: GASTROOESOPHAGEAL REFLUX DISEASE
     Route: 048
     Dates: start: 199904, end: 201701
  18. ADVAIR HFA [Concomitant]
     Active Substance: FLUTICASONE PROPIONATE\SALMETEROL XINAFOATE
     Dates: start: 20151103, end: 20160826
  19. VANCOMYCIN [Concomitant]
     Active Substance: VANCOMYCIN
  20. AZITHROMYCIN ANHYDROUS. [Concomitant]
     Active Substance: AZITHROMYCIN ANHYDROUS
  21. LIPITOR [Concomitant]
     Active Substance: ATORVASTATIN CALCIUM
  22. AMITIZA [Concomitant]
     Active Substance: LUBIPROSTONE
  23. NORTRIPTYLINE [Concomitant]
     Active Substance: NORTRIPTYLINE
  24. CITALOPRAM HYDROBROMIDE. [Concomitant]
     Active Substance: CITALOPRAM HYDROBROMIDE
  25. NEXIUM [Suspect]
     Active Substance: ESOMEPRAZOLE MAGNESIUM
     Indication: GASTROOESOPHAGEAL REFLUX DISEASE
     Dosage: GENERIC
     Route: 065
     Dates: start: 20090316
  26. PRILOSEC [Suspect]
     Active Substance: OMEPRAZOLE MAGNESIUM
     Indication: GASTROOESOPHAGEAL REFLUX DISEASE
     Route: 048
     Dates: start: 20081025, end: 20170124
  27. AMOXICILLIN. [Concomitant]
     Active Substance: AMOXICILLIN
  28. HUMALOG [Concomitant]
     Active Substance: INSULIN LISPRO
  29. DICYCLOMINE [Concomitant]
     Active Substance: DICYCLOMINE HYDROCHLORIDE
  30. SPIRONOLACTONE. [Concomitant]
     Active Substance: SPIRONOLACTONE
  31. INSULIN [Concomitant]
     Active Substance: INSULIN NOS
  32. ATROVENT [Concomitant]
     Active Substance: IPRATROPIUM BROMIDE
  33. PRILOSEC [Suspect]
     Active Substance: OMEPRAZOLE MAGNESIUM
     Indication: GASTROOESOPHAGEAL REFLUX DISEASE
     Dosage: 20-40 MG TWICE DAILY (GENERIC)
     Route: 048
     Dates: start: 20081201, end: 20090107
  34. PROMETHAZINE [Concomitant]
     Active Substance: PROMETHAZINE HYDROCHLORIDE
     Indication: ANTIALLERGIC THERAPY
     Dates: start: 20060515, end: 20160809
  35. MORPHINE [Concomitant]
     Active Substance: MORPHINE
     Indication: PAIN
     Dates: start: 20080616, end: 20130208
  36. DIAZEPAM. [Concomitant]
     Active Substance: DIAZEPAM
  37. PREDNISONE. [Concomitant]
     Active Substance: PREDNISONE
  38. LANTUS [Concomitant]
     Active Substance: INSULIN GLARGINE
  39. ASACOL [Concomitant]
     Active Substance: MESALAMINE
  40. LISINOPRIL. [Concomitant]
     Active Substance: LISINOPRIL
  41. GLUCOSE [Concomitant]
     Active Substance: DEXTROSE
  42. BALSALAZIDE [Concomitant]
     Active Substance: BALSALAZIDE
  43. PULMICORT TURBUHALER [Concomitant]
     Active Substance: BUDESONIDE
  44. LORATADINE. [Concomitant]
     Active Substance: LORATADINE
  45. VERAPAMIL [Concomitant]
     Active Substance: VERAPAMIL HYDROCHLORIDE
  46. BENTYL [Concomitant]
     Active Substance: DICYCLOMINE HYDROCHLORIDE
  47. PHENERGAN [Concomitant]
     Active Substance: PROMETHAZINE HYDROCHLORIDE
  48. BENADRYL [Concomitant]
     Active Substance: DIPHENHYDRAMINE HYDROCHLORIDE
  49. FERROUS SULFATE. [Concomitant]
     Active Substance: FERROUS SULFATE
  50. PRILOSEC OTC [Suspect]
     Active Substance: OMEPRAZOLE MAGNESIUM
     Indication: GASTROOESOPHAGEAL REFLUX DISEASE
     Route: 048
     Dates: start: 20151120, end: 20161120
  51. PREVACID [Suspect]
     Active Substance: LANSOPRAZOLE
     Indication: GASTROOESOPHAGEAL REFLUX DISEASE
     Route: 065
     Dates: start: 199904, end: 201701
  52. PREVACID [Suspect]
     Active Substance: LANSOPRAZOLE
     Indication: GASTROOESOPHAGEAL REFLUX DISEASE
     Route: 065
     Dates: start: 20090316, end: 20090416
  53. CYCLOBENZAPRINE. [Concomitant]
     Active Substance: CYCLOBENZAPRINE
  54. POLYETHYLENE GLYCOL [Concomitant]
     Active Substance: POLYETHYLENE GLYCOLS
  55. OXYCODONE [Concomitant]
     Active Substance: OXYCODONE
  56. GLUCAGEN [Concomitant]
     Active Substance: GLUCAGON HYDROCHLORIDE
  57. DUONEB [Concomitant]
     Active Substance: ALBUTEROL SULFATE\IPRATROPIUM BROMIDE
  58. RANITIDINE. [Concomitant]
     Active Substance: RANITIDINE
  59. METOCLOPRAMIDE. [Concomitant]
     Active Substance: METOCLOPRAMIDE
  60. EPINEPHRINE. [Concomitant]
     Active Substance: EPINEPHRINE
  61. ORAMORPH [Concomitant]
     Active Substance: MORPHINE SULFATE
  62. CIPROFLOXACIN. [Concomitant]
     Active Substance: CIPROFLOXACIN
  63. COLAZAL [Concomitant]
     Active Substance: BALSALAZIDE DISODIUM
  64. NYSTATIN. [Concomitant]
     Active Substance: NYSTATIN
  65. PRILOSEC [Suspect]
     Active Substance: OMEPRAZOLE MAGNESIUM
     Indication: GASTROOESOPHAGEAL REFLUX DISEASE
     Route: 048
     Dates: start: 20090430
  66. NAPROXEN SODIUM. [Concomitant]
     Active Substance: NAPROXEN SODIUM
  67. SULFASALAZINE. [Concomitant]
     Active Substance: SULFASALAZINE
  68. TOPIRAMATE. [Concomitant]
     Active Substance: TOPIRAMATE
  69. PAXIL [Concomitant]
     Active Substance: PAROXETINE HYDROCHLORIDE

REACTIONS (3)
  - Acute kidney injury [Not Recovered/Not Resolved]
  - Renal failure [Unknown]
  - Chronic kidney disease [Unknown]

NARRATIVE: CASE EVENT DATE: 20090811
